FAERS Safety Report 6576130-5 (Version None)
Quarter: 2010Q1

REPORT INFORMATION
  Report Type: 
  Country: None (occurrence: None)
  Receive Date: 20100209
  Receipt Date: 20100205
  Transmission Date: 20100710
  Serious: Yes (Other)
  Sender: FDA-Public Use
  Company Number: PHEH2007US08568

PATIENT
  Sex: Female

DRUGS (13)
  1. ELIDEL [Suspect]
     Indication: ECZEMA
     Route: 061
     Dates: start: 20040101
  2. BREVOXYL [Concomitant]
  3. DESOWEN [Concomitant]
  4. PHENERGAN ^AVENTIS PHARMA^ [Concomitant]
  5. LORAZEPAM [Concomitant]
  6. DULCOLAX [Concomitant]
  7. ALLOPURINOL [Concomitant]
  8. PERI-COLACE [Concomitant]
  9. AMBIEN [Concomitant]
  10. PHENTERMINE [Concomitant]
     Dosage: 37.5 UNK, UNK
  11. CIPRO [Concomitant]
  12. YASMIN [Concomitant]
  13. NIZORAL [Concomitant]
     Dosage: 200 MG, UNK

REACTIONS (27)
  - ABDOMINAL PAIN [None]
  - AMNESIA [None]
  - ANAEMIA [None]
  - ARTHRITIS [None]
  - ASTHMA [None]
  - BONE PAIN [None]
  - CARDIAC MURMUR [None]
  - DIABETES MELLITUS [None]
  - DIZZINESS [None]
  - DRUG EXPOSURE DURING PREGNANCY [None]
  - DYSMENORRHOEA [None]
  - FATIGUE [None]
  - HEADACHE [None]
  - HODGKIN'S DISEASE [None]
  - HYPERLIPIDAEMIA [None]
  - HYPERTENSION [None]
  - HYPOTHYROIDISM [None]
  - LYMPHADENOPATHY [None]
  - MIGRAINE [None]
  - MYOCARDIAL INFARCTION [None]
  - NEUROPATHY PERIPHERAL [None]
  - OTITIS MEDIA [None]
  - OVARIAN MASS [None]
  - SINUSITIS [None]
  - ULCER [None]
  - URINARY TRACT DISORDER [None]
  - VAGINAL HAEMORRHAGE [None]
